FAERS Safety Report 25239841 (Version 1)
Quarter: 2025Q2

REPORT INFORMATION
  Report Type: Spontaneous
  Country: FR (occurrence: FR)
  Receive Date: 20250425
  Receipt Date: 20250425
  Transmission Date: 20250717
  Serious: Yes (Life-Threatening)
  Sender: MYLAN
  Company Number: None

PATIENT
  Age: 65 Year
  Sex: Male
  Weight: 52 kg

DRUGS (2)
  1. VERAPAMIL HYDROCHLORIDE [4]
     Active Substance: VERAPAMIL HYDROCHLORIDE
     Indication: Product used for unknown indication
  2. EPINEPHRINE [Suspect]
     Active Substance: EPINEPHRINE
     Indication: Product used for unknown indication
     Dates: start: 20250304, end: 20250304

REACTIONS (5)
  - Hypertension [Recovered/Resolved]
  - Atrial fibrillation [Recovered/Resolved]
  - Arteriospasm coronary [Recovered/Resolved]
  - Wrong product administered [Recovered/Resolved]
  - Product packaging confusion [Recovered/Resolved]

NARRATIVE: CASE EVENT DATE: 20250304
